FAERS Safety Report 8345157-5 (Version None)
Quarter: 2012Q2

REPORT INFORMATION
  Report Type: 
  Country: None (occurrence: None)
  Receive Date: 20120508
  Receipt Date: 20120501
  Transmission Date: 20120825
  Serious: Yes (Death, Other)
  Sender: FDA-Public Use
  Company Number: PHHY2012SA037760

PATIENT
  Age: 46 Year
  Sex: Male

DRUGS (3)
  1. CYCLOSPORINE [Suspect]
     Dosage: UNK
     Dates: start: 20111119
  2. IMATINIB MESYLATE [Suspect]
     Indication: CHRONIC MYELOID LEUKAEMIA
     Dosage: 400 MG, UNK
  3. CYCLOSPORINE [Suspect]
     Dosage: 5 MG/KG, PER DAY

REACTIONS (3)
  - SEPSIS [None]
  - PANCYTOPENIA [None]
  - BONE MARROW FAILURE [None]
